FAERS Safety Report 12668232 (Version 3)
Quarter: 2017Q1

REPORT INFORMATION
  Report Type: Spontaneous
  Country: US (occurrence: US)
  Receive Date: 20160819
  Receipt Date: 20170113
  Transmission Date: 20170428
  Serious: Yes (Hospitalization)
  Sender: FDA-Public Use
  Company Number: US-ELI_LILLY_AND_COMPANY-US201608008849

PATIENT
  Sex: Female
  Weight: 66 kg

DRUGS (9)
  1. SYNTHROID [Concomitant]
     Active Substance: LEVOTHYROXINE SODIUM
     Dosage: UNK, QD
  2. MELATONIN [Concomitant]
     Active Substance: MELATONIN
  3. MULTIVITAMIN                       /02371501/ [Concomitant]
     Dosage: UNK, QD
  4. FORTEO [Suspect]
     Active Substance: TERIPARATIDE
     Indication: OSTEOPOROSIS
     Dosage: UNK, UNKNOWN
     Route: 065
     Dates: start: 201412, end: 20160805
  5. BIOTINE                            /00772301/ [Concomitant]
     Dosage: UNK, QD
  6. PRILOSEC [Concomitant]
     Active Substance: OMEPRAZOLE MAGNESIUM
     Dosage: UNK, QD
  7. COLACE [Concomitant]
     Active Substance: DOCUSATE SODIUM
     Dosage: UNK, BID
  8. NEURONTIN [Concomitant]
     Active Substance: GABAPENTIN
     Dosage: UNK, UNKNOWN
  9. THE VISION FORMULA [Concomitant]
     Dosage: UNK, QD

REACTIONS (1)
  - Oesophageal adenocarcinoma stage II [Unknown]
